FAERS Safety Report 4828721-7 (Version None)
Quarter: 2005Q4

REPORT INFORMATION
  Report Type: 
  Country: None (occurrence: None)
  Receive Date: 20051115
  Receipt Date: 20051107
  Transmission Date: 20060501
  Serious: Yes (Hospitalization, Other)
  Sender: FDA-Public Use
  Company Number: US-MERCK-0511USA01284

PATIENT
  Age: 70 Year
  Sex: Male
  Weight: 77 kg

DRUGS (10)
  1. VIOXX [Suspect]
     Indication: BACK PAIN
     Route: 048
     Dates: start: 20010301, end: 20040901
  2. VIOXX [Suspect]
     Indication: OSTEOARTHRITIS
     Route: 048
     Dates: start: 20010301, end: 20040901
  3. [THERAPY UNSPECIFIED] [Concomitant]
     Route: 065
  4. NEURONTIN [Concomitant]
     Route: 065
  5. NEXIUM [Concomitant]
     Route: 065
  6. VITAMINS (UNSPECIFIED) [Concomitant]
     Route: 065
  7. FOLIC ACID [Concomitant]
     Route: 065
  8. OMEGA-3 [Concomitant]
     Route: 065
  9. ZOCOR [Concomitant]
     Route: 065
  10. FLOMAX (MORNIFLUMATE) [Concomitant]
     Route: 065

REACTIONS (6)
  - ARTHROPATHY [None]
  - ATRIAL FIBRILLATION [None]
  - PERIPHERAL VASCULAR DISORDER [None]
  - PROSTATE CANCER [None]
  - RETINAL ARTERY OCCLUSION [None]
  - VENTRICULAR EXTRASYSTOLES [None]
